FAERS Safety Report 20155596 (Version 1)
Quarter: 2021Q4

REPORT INFORMATION
  Report Type: Spontaneous
  Country: SE (occurrence: SE)
  Receive Date: 20211207
  Receipt Date: 20211207
  Transmission Date: 20220304
  Serious: Yes (Other)
  Sender: FDA-Public Use
  Company Number: None

PATIENT
  Sex: Female

DRUGS (3)
  1. NAPROXEN [Suspect]
     Active Substance: NAPROXEN
     Indication: Arthralgia
     Dosage: UNK
  2. NAPROXEN [Suspect]
     Active Substance: NAPROXEN
     Indication: Arthritis
     Dosage: UNK, START DATE: ??-AUG-2021
     Dates: end: 202110
  3. ACETAMINOPHEN [Concomitant]
     Active Substance: ACETAMINOPHEN
     Dosage: UNK

REACTIONS (13)
  - Myositis [Unknown]
  - Chest discomfort [Unknown]
  - Gallbladder disorder [Unknown]
  - Stress [Unknown]
  - Gastrointestinal disorder [Unknown]
  - Cold sweat [Unknown]
  - Abdominal pain [Unknown]
  - Dyspepsia [Unknown]
  - Palpitations [Unknown]
  - Nausea [Unknown]
  - Headache [Unknown]
  - Pain [Unknown]
  - Product communication issue [Unknown]

NARRATIVE: CASE EVENT DATE: 20210101
